FAERS Safety Report 8997309 (Version 1)
Quarter: 2013Q1

REPORT INFORMATION
  Report Type: Spontaneous
  Country: US (occurrence: US)
  Receive Date: 20130104
  Receipt Date: 20130104
  Transmission Date: 20140127
  Serious: No
  Sender: FDA-Public Use
  Company Number: US-009507513-1301USA000585

PATIENT
  Age: 19 Year
  Sex: Female

DRUGS (3)
  1. BOCEPREVIR [Suspect]
     Indication: CHRONIC HEPATITIS C
     Dosage: UNK
     Dates: start: 201210
  2. RIBAVIRIN [Suspect]
     Indication: CHRONIC HEPATITIS C
     Dosage: 1000 MG/DAY, DIVIDED DOSES
     Route: 048
     Dates: start: 20120922
  3. PEGASYS [Suspect]
     Indication: CHRONIC HEPATITIS C
     Dosage: 150 MICROGRAM, QW
     Route: 058
     Dates: start: 20120922

REACTIONS (7)
  - Malaise [Unknown]
  - Fatigue [Unknown]
  - Asthenia [Unknown]
  - Full blood count decreased [Unknown]
  - White blood cell count decreased [Unknown]
  - Platelet count decreased [Unknown]
  - Menorrhagia [Unknown]
